FAERS Safety Report 13510714 (Version 5)
Quarter: 2017Q3

REPORT INFORMATION
  Report Type: Report from Study
  Country: CO (occurrence: CO)
  Receive Date: 20170503
  Receipt Date: 20170905
  Transmission Date: 20171127
  Serious: Yes (Death, Hospitalization, Other)
  Sender: FDA-Public Use
  Company Number: PHHY2017CO062283

PATIENT
  Sex: Male
  Weight: 56 kg

DRUGS (6)
  1. REVOLADE [Suspect]
     Active Substance: ELTROMBOPAG
     Dosage: 100 MG, UNK (FOR 20 DAYS)
     Route: 048
  2. GENOPRAZOL [Concomitant]
     Indication: PRODUCT USED FOR UNKNOWN INDICATION
     Route: 065
  3. REVOLADE [Suspect]
     Active Substance: ELTROMBOPAG
     Indication: IMMUNE THROMBOCYTOPENIC PURPURA
     Dosage: 25 MG, BID
     Route: 048
     Dates: start: 20170308, end: 20170712
  4. OMEPRAZOLE. [Concomitant]
     Active Substance: OMEPRAZOLE
     Indication: PRODUCT USED FOR UNKNOWN INDICATION
     Route: 065
  5. REVOLADE [Suspect]
     Active Substance: ELTROMBOPAG
     Dosage: 50 MG, BID
     Route: 048
  6. PREDNISOLONE. [Concomitant]
     Active Substance: PREDNISOLONE
     Indication: PRODUCT USED FOR UNKNOWN INDICATION
     Dosage: 50 MG, QD (1 DF AT 7: 00 AM)
     Route: 065
     Dates: start: 201611

REACTIONS (19)
  - Gingival bleeding [Unknown]
  - Haemoglobin decreased [Unknown]
  - Death [Fatal]
  - Vomiting [Unknown]
  - Lung disorder [Unknown]
  - Heart rate increased [Recovering/Resolving]
  - Petechiae [Unknown]
  - Malaise [Unknown]
  - Pneumonia [Unknown]
  - Drug ineffective [Unknown]
  - Contusion [Unknown]
  - Haemorrhage [Unknown]
  - Epistaxis [Unknown]
  - Decreased immune responsiveness [Unknown]
  - Platelet count decreased [Unknown]
  - Mouth haemorrhage [Unknown]
  - Pyrexia [Unknown]
  - Hypotension [Unknown]
  - Weight decreased [Unknown]
